FAERS Safety Report 19988143 (Version 3)
Quarter: 2023Q4

REPORT INFORMATION
  Report Type: Report from Study
  Country: US (occurrence: US)
  Receive Date: 20211022
  Receipt Date: 20231009
  Transmission Date: 20240110
  Serious: Yes (Hospitalization, Other)
  Sender: FDA-Public Use
  Company Number: US-TAKEDA-US202000757

PATIENT
  Sex: Female

DRUGS (1)
  1. HUMAN IMMUNOGLOBULIN G [Suspect]
     Active Substance: HUMAN IMMUNOGLOBULIN G
     Indication: Immunodeficiency common variable
     Dosage: UNK
     Route: 065

REACTIONS (12)
  - Abscess [Unknown]
  - Chronic obstructive pulmonary disease [Unknown]
  - Colitis [Unknown]
  - Medical device site infection [Unknown]
  - Impaired gastric emptying [Unknown]
  - Pancreatitis [Unknown]
  - Pneumothorax [Unknown]
  - Subcutaneous abscess [Unknown]
  - Feeding tube user [Unknown]
  - Ankle fracture [Unknown]
  - Fall [Unknown]
  - Pain [Unknown]
